FAERS Safety Report 25268570 (Version 1)
Quarter: 2025Q2

REPORT INFORMATION
  Report Type: Spontaneous
  Country: US (occurrence: US)
  Receive Date: 20250505
  Receipt Date: 20250505
  Transmission Date: 20250716
  Serious: No
  Sender: TEVA
  Company Number: US-TEVA-VS-3321848

PATIENT
  Age: 35 Year
  Sex: Female

DRUGS (1)
  1. ADDERALL [Suspect]
     Active Substance: AMPHETAMINE ASPARTATE\AMPHETAMINE SULFATE\DEXTROAMPHETAMINE SACCHARATE\DEXTROAMPHETAMINE SULFATE
     Indication: Product used for unknown indication
     Route: 048

REACTIONS (9)
  - Balance disorder [Unknown]
  - Palpitations [Unknown]
  - Drug ineffective [Unknown]
  - Anxiety [Unknown]
  - Drug ineffective [Unknown]
  - Insomnia [Unknown]
  - Dizziness [Unknown]
  - Hypertension [Unknown]
  - Blood glucose increased [Unknown]
